FAERS Safety Report 5261062-5 (Version None)
Quarter: 2007Q1

REPORT INFORMATION
  Report Type: 
  Country: None (occurrence: None)
  Receive Date: 20070306
  Receipt Date: 20070221
  Transmission Date: 20070707
  Serious: Yes (Hospitalization)
  Sender: FDA-Public Use
  Company Number: 2007RR-05960

PATIENT
  Age: 49 Year
  Sex: 0

DRUGS (3)
  1. DICLOFENAC SODIUM [Suspect]
  2. IBUPROFEN [Suspect]
  3. KETOROLAC TROMETHAMINE (KETOROLAC) [Concomitant]

REACTIONS (4)
  - ENDOCARDITIS STAPHYLOCOCCAL [None]
  - GENERAL PHYSICAL HEALTH DETERIORATION [None]
  - OSTEOMYELITIS [None]
  - RENAL FAILURE ACUTE [None]
